FAERS Safety Report 13817724 (Version 2)
Quarter: 2017Q3

REPORT INFORMATION
  Report Type: Report from Study
  Country: US (occurrence: US)
  Receive Date: 20170731
  Receipt Date: 20170807
  Transmission Date: 20171127
  Serious: Yes (Hospitalization)
  Sender: FDA-Public Use
  Company Number: US-ACTELION-A-US2017-154669

PATIENT
  Age: 65 Year
  Sex: Female

DRUGS (9)
  1. ALPRAZOLAM. [Concomitant]
     Active Substance: ALPRAZOLAM
     Dosage: 0.25 MG, QD
  2. OPSUMIT [Suspect]
     Active Substance: MACITENTAN
     Indication: PULMONARY HYPERTENSION
     Dosage: 10 MG, QD
     Route: 048
     Dates: start: 20170516, end: 20170621
  3. IRON [Concomitant]
     Active Substance: IRON
     Dosage: 65 MG, TID
  4. NORVASC [Concomitant]
     Active Substance: AMLODIPINE BESYLATE
     Dosage: 5 MG, QD
  5. HYDROCHLOROTHIAZIDE. [Concomitant]
     Active Substance: HYDROCHLOROTHIAZIDE
     Dosage: 25 MG, QD
  6. VITAMINS NOS [Concomitant]
     Active Substance: VITAMINS
     Dosage: UNK MG, QD
  7. OMEPRAZOLE. [Concomitant]
     Active Substance: OMEPRAZOLE
     Dosage: UNK MG, QD
  8. ATORVASTATIN [Concomitant]
     Active Substance: ATORVASTATIN
     Dosage: 80 MG, QD
     Dates: start: 201604
  9. DESIPRAMINE [Concomitant]
     Active Substance: DESIPRAMINE
     Dosage: 100 MG, QD

REACTIONS (13)
  - Anaemia [Recovering/Resolving]
  - Haemoglobin decreased [Recovering/Resolving]
  - Serum ferritin abnormal [Recovering/Resolving]
  - Fatigue [Recovering/Resolving]
  - Oedema peripheral [Not Recovered/Not Resolved]
  - Weight increased [Recovering/Resolving]
  - Constipation [Recovering/Resolving]
  - Abdominal distension [Recovering/Resolving]
  - Dyspnoea exertional [Not Recovered/Not Resolved]
  - Abdominal tenderness [Recovering/Resolving]
  - Dyspnoea [Not Recovered/Not Resolved]
  - Haematocrit decreased [Recovering/Resolving]
  - Red blood cell count decreased [Recovering/Resolving]

NARRATIVE: CASE EVENT DATE: 20170524
